FAERS Safety Report 6762225-X (Version None)
Quarter: 2010Q2

REPORT INFORMATION
  Report Type: 
  Country: None (occurrence: None)
  Receive Date: 20100609
  Receipt Date: 20100527
  Transmission Date: 20101027
  Serious: Yes (Other)
  Sender: FDA-Public Use
  Company Number: PHHY2009ZA54893

PATIENT
  Sex: Female

DRUGS (1)
  1. ZOMETA [Suspect]
     Dosage: UNK

REACTIONS (3)
  - HAEMATURIA [None]
  - NEPHROLITHIASIS [None]
  - RENAL PAIN [None]
